FAERS Safety Report 25478280 (Version 1)
Quarter: 2025Q2

REPORT INFORMATION
  Report Type: Spontaneous
  Country: US (occurrence: US)
  Receive Date: 20250625
  Receipt Date: 20250625
  Transmission Date: 20250716
  Serious: No
  Sender: GLAXOSMITHKLINE
  Company Number: US-GSK-US2025AMR079262

PATIENT
  Sex: Female

DRUGS (1)
  1. BENLYSTA [Suspect]
     Active Substance: BELIMUMAB
     Indication: Glomerulonephritis
     Dosage: 200 MG, WE
     Dates: start: 20250523

REACTIONS (2)
  - Renal disorder [Unknown]
  - Condition aggravated [Unknown]
